FAERS Safety Report 5452815-9 (Version None)
Quarter: 2007Q3

REPORT INFORMATION
  Report Type: 
  Country: None (occurrence: None)
  Receive Date: 20070914
  Receipt Date: 20070906
  Transmission Date: 20080115
  Serious: Yes (Life-Threatening)
  Sender: FDA-Public Use
  Company Number: DE-ELI_LILLY_AND_COMPANY-DE200709001410

PATIENT
  Age: 52 Year
  Sex: Male

DRUGS (2)
  1. HUMINSULIN REGULAR [Suspect]
     Route: 058
  2. HUMULIN N [Suspect]
     Route: 058

REACTIONS (2)
  - INCORRECT DOSE ADMINISTERED [None]
  - SHOCK [None]
